FAERS Safety Report 5484121-0 (Version None)
Quarter: 2007Q4

REPORT INFORMATION
  Report Type: 
  Country: None (occurrence: None)
  Receive Date: 20071012
  Receipt Date: 20071005
  Transmission Date: 20080405
  Serious: Yes (Death, Other)
  Sender: FDA-Public Use
  Company Number: AT-SHR-AT-2007-031557

PATIENT
  Sex: Male

DRUGS (3)
  1. FLUDARABINE PHOSPHATE [Suspect]
     Dosage: 6 CYCLES
     Route: 042
     Dates: start: 20061101
  2. CYCLOPHOSPHAMIDE [Suspect]
     Dates: start: 20061101
  3. RITUXIMAB [Suspect]
     Dates: start: 20061101

REACTIONS (2)
  - DEATH [None]
  - PEMPHIGUS [None]
